FAERS Safety Report 23094346 (Version 1)
Quarter: 2023Q4

REPORT INFORMATION
  Report Type: Other
  Country: US (occurrence: None)
  Receive Date: 20231023
  Receipt Date: 20231023
  Transmission Date: 20240110
  Serious: Yes (Other)
  Sender: FDA-Public Use
  Company Number: US-ROCHE-3037870

PATIENT
  Age: 42 Year
  Sex: Female
  Weight: 77.18 kg

DRUGS (3)
  1. OCREVUS [Suspect]
     Active Substance: OCRELIZUMAB
     Indication: Relapsing-remitting multiple sclerosis
     Dosage: 300 MG ON DAY 1 AND DAY 15 THEN 600 MG EVERY 6 MONTHS
     Route: 042
  2. OCREVUS [Suspect]
     Active Substance: OCRELIZUMAB
     Route: 042
     Dates: start: 2019
  3. ERGOCALCIFEROL [Concomitant]
     Active Substance: ERGOCALCIFEROL

REACTIONS (18)
  - Dyspnoea [Unknown]
  - Abdominal pain upper [Unknown]
  - Dysphagia [Unknown]
  - Throat tightness [Unknown]
  - Sensory disturbance [Unknown]
  - Pharyngeal disorder [Unknown]
  - Multiple sclerosis [Unknown]
  - Throat irritation [Unknown]
  - Brain oedema [Unknown]
  - Migraine [Unknown]
  - Condition aggravated [Unknown]
  - Gastrointestinal disorder [Not Recovered/Not Resolved]
  - Influenza [Unknown]
  - Muscle spasms [Not Recovered/Not Resolved]
  - Muscular weakness [Not Recovered/Not Resolved]
  - Arthropathy [Not Recovered/Not Resolved]
  - Arthralgia [Not Recovered/Not Resolved]
  - Headache [Recovered/Resolved]

NARRATIVE: CASE EVENT DATE: 20231004
